FAERS Safety Report 18874826 (Version 3)
Quarter: 2022Q3

REPORT INFORMATION
  Report Type: Spontaneous
  Country: US (occurrence: None)
  Receive Date: 20210210
  Receipt Date: 20220929
  Transmission Date: 20221026
  Serious: Yes (Other)
  Sender: FDA-Public Use
  Company Number: 2021A027387

PATIENT
  Age: 44 Year
  Sex: Female
  Weight: 90.7 kg

DRUGS (75)
  1. NEXIUM [Suspect]
     Active Substance: ESOMEPRAZOLE MAGNESIUM
     Indication: Gastrooesophageal reflux disease
     Route: 048
     Dates: start: 2008, end: 2017
  2. NEXIUM [Suspect]
     Active Substance: ESOMEPRAZOLE MAGNESIUM
     Indication: Gastrooesophageal reflux disease
     Route: 048
     Dates: start: 2001, end: 2017
  3. NEXIUM 24HR [Suspect]
     Active Substance: ESOMEPRAZOLE MAGNESIUM
     Indication: Gastrooesophageal reflux disease
     Route: 048
     Dates: start: 2008, end: 2017
  4. NEXIUM 24HR [Suspect]
     Active Substance: ESOMEPRAZOLE MAGNESIUM
     Indication: Gastrooesophageal reflux disease
     Route: 048
     Dates: start: 2014, end: 2017
  5. PRILOSEC [Suspect]
     Active Substance: OMEPRAZOLE MAGNESIUM
     Indication: Gastrooesophageal reflux disease
     Route: 048
     Dates: start: 2008, end: 2017
  6. PRILOSEC [Suspect]
     Active Substance: OMEPRAZOLE MAGNESIUM
     Indication: Gastrooesophageal reflux disease
     Route: 048
     Dates: start: 1999, end: 2017
  7. PRILOSEC [Suspect]
     Active Substance: OMEPRAZOLE MAGNESIUM
     Indication: Gastrooesophageal reflux disease
     Dosage: GENERIC
     Route: 065
     Dates: start: 200507
  8. PRILOSEC OTC [Suspect]
     Active Substance: OMEPRAZOLE MAGNESIUM
     Indication: Gastrooesophageal reflux disease
     Route: 048
     Dates: start: 2008, end: 2017
  9. PRILOSEC OTC [Suspect]
     Active Substance: OMEPRAZOLE MAGNESIUM
     Indication: Gastrooesophageal reflux disease
     Route: 048
     Dates: start: 2003, end: 2017
  10. ZEGERID [Suspect]
     Active Substance: OMEPRAZOLE\SODIUM BICARBONATE
     Indication: Gastrooesophageal reflux disease
     Route: 065
     Dates: start: 20080802, end: 2020
  11. PREVACID [Suspect]
     Active Substance: LANSOPRAZOLE
     Indication: Gastrooesophageal reflux disease
     Route: 065
     Dates: start: 2008, end: 2017
  12. PREVACID [Suspect]
     Active Substance: LANSOPRAZOLE
     Indication: Gastrooesophageal reflux disease
     Dosage: 20.0MG UNKNOWN
     Route: 065
     Dates: start: 1995, end: 2017
  13. PREVACID 24 HR [Suspect]
     Active Substance: LANSOPRAZOLE
     Indication: Gastrooesophageal reflux disease
     Route: 065
     Dates: start: 2008, end: 2017
  14. PREVACID 24 HR [Suspect]
     Active Substance: LANSOPRAZOLE
     Indication: Gastrooesophageal reflux disease
     Route: 065
     Dates: start: 2009, end: 2017
  15. PROTONIX [Suspect]
     Active Substance: PANTOPRAZOLE SODIUM
     Indication: Gastrooesophageal reflux disease
     Dosage: 40.0MG UNKNOWN
     Route: 065
     Dates: start: 2001
  16. PROTONIX [Suspect]
     Active Substance: PANTOPRAZOLE SODIUM
     Indication: Gastrooesophageal reflux disease
     Dosage: 40.0MG UNKNOWN
     Route: 065
     Dates: start: 2006, end: 2011
  17. AZITHROMYCIN [Concomitant]
     Active Substance: AZITHROMYCIN
     Indication: Infection
     Dates: start: 2008
  18. NAPROXEN [Concomitant]
     Active Substance: NAPROXEN
     Indication: Pain
     Dates: start: 2008
  19. TRAMADOL [Concomitant]
     Active Substance: TRAMADOL
     Indication: Pain
     Dates: start: 2008
  20. CELEBREX [Concomitant]
     Active Substance: CELECOXIB
     Indication: Pain
  21. FENTANYL [Concomitant]
     Active Substance: FENTANYL
  22. VERSED [Concomitant]
     Active Substance: MIDAZOLAM HYDROCHLORIDE
  23. CLINDAMYCIN [Concomitant]
     Active Substance: CLINDAMYCIN
  24. VANCOMYCIN [Concomitant]
     Active Substance: VANCOMYCIN
  25. FLAGYL [Concomitant]
     Active Substance: METRONIDAZOLE\METRONIDAZOLE HYDROCHLORIDE
  26. CARAFATE [Concomitant]
     Active Substance: SUCRALFATE
  27. WELCHOL [Concomitant]
     Active Substance: COLESEVELAM HYDROCHLORIDE
  28. ACETAMINOPHEN\HYDROCODONE BITARTRATE [Concomitant]
     Active Substance: ACETAMINOPHEN\HYDROCODONE BITARTRATE
  29. CIPROFLOXACIN [Concomitant]
     Active Substance: CIPROFLOXACIN
  30. PROMETHAZINE [Concomitant]
     Active Substance: PROMETHAZINE HYDROCHLORIDE
  31. HYDROMORPHONE [Concomitant]
     Active Substance: HYDROMORPHONE
  32. METOCLOPRAMIDE [Concomitant]
     Active Substance: METOCLOPRAMIDE
  33. REQUIP [Concomitant]
     Active Substance: ROPINIROLE HYDROCHLORIDE
  34. TOPAMAX [Concomitant]
     Active Substance: TOPIRAMATE
  35. CYCLOBENZAPRINE [Concomitant]
     Active Substance: CYCLOBENZAPRINE
  36. GABAPENTIN [Concomitant]
     Active Substance: GABAPENTIN
  37. BENZONATATE [Concomitant]
     Active Substance: BENZONATATE
  38. SKELAXIN [Concomitant]
     Active Substance: METAXALONE
  39. WOOL FAT/PROPOLIS/PARAFFIN, LIQUID/EUCALYPTUS GLOBULUS/HELIANTHUS ANNU [Concomitant]
  40. HYOSCYAMINE [Concomitant]
     Active Substance: HYOSCYAMINE
  41. FERROUS SULFATE [Concomitant]
     Active Substance: FERROUS SULFATE
  42. CEPHALEXIN [Concomitant]
     Active Substance: CEPHALEXIN
  43. TEMAZEPAM [Concomitant]
     Active Substance: TEMAZEPAM
  44. WARFARIN [Concomitant]
     Active Substance: WARFARIN
  45. PARMIPEXOLE [Concomitant]
  46. DIAZEPAM [Concomitant]
     Active Substance: DIAZEPAM
  47. ENOXAPARIN [Concomitant]
     Active Substance: ENOXAPARIN
  48. AMITRIPTYLINE [Concomitant]
     Active Substance: AMITRIPTYLINE
  49. CEFPODOXIME/AZITHROMYCIN [Concomitant]
  50. LIDODERM [Concomitant]
     Active Substance: LIDOCAINE
  51. ELIQUIS [Concomitant]
     Active Substance: APIXABAN
  52. LOPERAMIDE [Concomitant]
     Active Substance: LOPERAMIDE
  53. DOXYCYCLINE HYCLATE [Concomitant]
     Active Substance: DOXYCYCLINE HYCLATE
  54. MORPHINE [Concomitant]
     Active Substance: MORPHINE
  55. NITROFURANTOIN [Concomitant]
     Active Substance: NITROFURANTOIN
  56. ORPHENADRINE/ACETYLSALICYLIC ACID [Concomitant]
  57. METHYLPREDNISOLONE [Concomitant]
     Active Substance: METHYLPREDNISOLONE
  58. OXYCODONE AND ACETAMINOPHEN [Concomitant]
     Active Substance: ACETAMINOPHEN\OXYCODONE HYDROCHLORIDE
  59. ESTRADIOL [Concomitant]
     Active Substance: ESTRADIOL
  60. COMPAZINE [Concomitant]
     Active Substance: PROCHLORPERAZINE MALEATE
  61. PREDNISONE [Concomitant]
     Active Substance: PREDNISONE
  62. HYDROMORPHONE [Concomitant]
     Active Substance: HYDROMORPHONE
  63. CODEINE [Concomitant]
     Active Substance: CODEINE
  64. TRIMETHADIONE/ PARAMETHADIONE [Concomitant]
  65. ERYTHROMYCIN [Concomitant]
     Active Substance: ERYTHROMYCIN
  66. CHLORPHENIRAMINE [Concomitant]
     Active Substance: CHLORPHENIRAMINE
  67. RIVAROXABAN [Concomitant]
     Active Substance: RIVAROXABAN
  68. ACETAMINOPHEN [Concomitant]
     Active Substance: ACETAMINOPHEN
     Indication: Pyrexia
     Dates: start: 2002
  69. ACETAMINOPHEN [Concomitant]
     Active Substance: ACETAMINOPHEN
     Indication: Headache
     Dates: start: 2002
  70. IBUPROFEN [Concomitant]
     Active Substance: IBUPROFEN
     Indication: Pyrexia
     Dates: start: 2002
  71. IBUPROFEN [Concomitant]
     Active Substance: IBUPROFEN
     Indication: Headache
     Dates: start: 2002
  72. PEPCID [Concomitant]
     Active Substance: FAMOTIDINE
     Dates: start: 2012, end: 2015
  73. TUMS [Concomitant]
     Active Substance: CALCIUM CARBONATE
     Dosage: AS NEEDED
  74. ROLAIDS [Concomitant]
     Active Substance: CALCIUM CARBONATE\MAGNESIUM HYDROXIDE
     Dosage: AS NEEDED
  75. MYLANTA [Concomitant]
     Active Substance: ALUMINUM HYDROXIDE\DIMETHICONE\MAGNESIUM HYDROXIDE
     Dosage: AS NEEDED

REACTIONS (7)
  - Chronic kidney disease [Not Recovered/Not Resolved]
  - Chronic kidney disease-mineral and bone disorder [Unknown]
  - Acute kidney injury [Unknown]
  - Renal vein thrombosis [Unknown]
  - Renal disorder [Unknown]
  - Glomerulonephritis [Unknown]
  - Gastrooesophageal reflux disease [Not Recovered/Not Resolved]

NARRATIVE: CASE EVENT DATE: 20130101
